FAERS Safety Report 18066749 (Version 15)
Quarter: 2024Q1

REPORT INFORMATION
  Report Type: Spontaneous
  Country: US (occurrence: US)
  Receive Date: 20200724
  Receipt Date: 20240102
  Transmission Date: 20240410
  Serious: Yes (Other)
  Sender: FDA-Public Use
  Company Number: US-PFIZER INC-2020091395

PATIENT
  Age: 64 Year
  Sex: Male
  Weight: 72 kg

DRUGS (8)
  1. XELJANZ XR [Suspect]
     Active Substance: TOFACITINIB CITRATE
     Indication: Arthritis reactive
     Dosage: 11 MG, 1X/DAY
     Dates: start: 2018
  2. XELJANZ XR [Suspect]
     Active Substance: TOFACITINIB CITRATE
     Indication: Rheumatoid arthritis
     Dosage: 11 MG, 1X/DAY
     Dates: start: 201912
  3. XELJANZ XR [Suspect]
     Active Substance: TOFACITINIB CITRATE
     Dosage: 11 MG, DAILY
     Route: 048
  4. CETIRIZINE HYDROCHLORIDE [Concomitant]
     Active Substance: CETIRIZINE HYDROCHLORIDE
     Indication: Rhinorrhoea
     Dosage: UNK
  5. FERROUS SULFATE [Concomitant]
     Active Substance: FERROUS SULFATE
     Indication: Anaemia
     Dosage: UNK
  6. ASPIRIN [Concomitant]
     Active Substance: ASPIRIN
     Dosage: UNK
  7. CALCIUM CARBONATE\VITAMIN D [Concomitant]
     Active Substance: CALCIUM CARBONATE\VITAMIN D
     Dosage: UNK
  8. FOLIC ACID [Concomitant]
     Active Substance: FOLIC ACID
     Dosage: UNK

REACTIONS (11)
  - Pulmonary embolism [Unknown]
  - Thrombosis [Unknown]
  - Pulmonary thrombosis [Unknown]
  - Arthritis reactive [Unknown]
  - Near death experience [Unknown]
  - Rhinorrhoea [Unknown]
  - Memory impairment [Unknown]
  - Low density lipoprotein increased [Recovering/Resolving]
  - Therapeutic response unexpected [Unknown]
  - High density lipoprotein increased [Unknown]
  - Inflammation [Unknown]
